FAERS Safety Report 9346027 (Version 1)
Quarter: 2013Q2

REPORT INFORMATION
  Report Type: Spontaneous
  Country: NO (occurrence: NO)
  Receive Date: 20130613
  Receipt Date: 20130613
  Transmission Date: 20140414
  Serious: Yes (Hospitalization, Other)
  Sender: FDA-Public Use
  Company Number: NO-ELI_LILLY_AND_COMPANY-NO201306002208

PATIENT
  Age: 26 Year
  Sex: Male

DRUGS (7)
  1. ZYPREXA [Suspect]
     Indication: MANIA
     Dosage: 5 MG, UNK
  2. ZYPREXA [Suspect]
     Dosage: 5 MG, PRN
  3. ZYPREXA [Suspect]
     Dosage: 10 MG, EACH EVENING
     Dates: start: 20100331
  4. CIPRALEX [Concomitant]
     Dosage: 5 MG, UNKNOWN
  5. CIPRALEX [Concomitant]
     Dosage: 10 MG, QD
     Dates: start: 20100331
  6. DAIVOBET [Concomitant]
     Dosage: 1 DF, UNKNOWN
     Route: 061
  7. KETORAX [Concomitant]
     Dosage: 1 DF, UNKNOWN

REACTIONS (10)
  - Suicide attempt [Recovered/Resolved with Sequelae]
  - Traumatic haemorrhage [Unknown]
  - Vascular injury [Recovered/Resolved with Sequelae]
  - Restless legs syndrome [Unknown]
  - Restlessness [Recovered/Resolved]
  - Disturbance in attention [Recovered/Resolved]
  - Feeling abnormal [Recovered/Resolved]
  - Weight increased [Recovered/Resolved]
  - Somnolence [Recovered/Resolved]
  - Inappropriate schedule of drug administration [Unknown]
